FAERS Safety Report 20701576 (Version 1)
Quarter: 2022Q2

REPORT INFORMATION
  Report Type: Spontaneous
  Country: US (occurrence: US)
  Receive Date: 20220412
  Receipt Date: 20220412
  Transmission Date: 20220721
  Serious: No
  Sender: FDA-Public Use
  Company Number: US-ALKERMES INC.-ALK-2022-001758

PATIENT
  Sex: Female

DRUGS (1)
  1. VIVITROL [Suspect]
     Active Substance: NALTREXONE
     Indication: Product used for unknown indication
     Dosage: 380 MILLIGRAM, QMO
     Route: 030

REACTIONS (5)
  - Muscular weakness [Unknown]
  - Creatinine renal clearance abnormal [Unknown]
  - Blood creatine phosphokinase increased [Unknown]
  - Hepatic enzyme increased [Unknown]
  - Fatigue [Unknown]
